FAERS Safety Report 8282907-0 (Version None)
Quarter: 2012Q2

REPORT INFORMATION
  Report Type: 
  Country: None (occurrence: None)
  Receive Date: 20120413
  Receipt Date: 20120405
  Transmission Date: 20120825
  Serious: Yes (Other)
  Sender: FDA-Public Use
  Company Number: DE-VERTEX PHARMACEUTICALS INC.-000000000000000488

PATIENT
  Sex: Female

DRUGS (4)
  1. OTHER DRUGS (UNSPECIFIED) [Concomitant]
     Route: 065
  2. OTHER DRUGS (UNSPECIFIED) [Concomitant]
     Route: 065
  3. INCIVO (TELAPREVIR) [Suspect]
     Indication: PRODUCT USED FOR UNKNOWN INDICATION
     Dosage: DOSAGE FORM: TABLET
     Route: 048
  4. OTHER DRUGS (UNSPECIFIED) [Concomitant]
     Route: 065

REACTIONS (2)
  - RASH [None]
  - STEVENS-JOHNSON SYNDROME [None]
